FAERS Safety Report 24086235 (Version 1)
Quarter: 2024Q3

REPORT INFORMATION
  Report Type: Spontaneous
  Country: ES (occurrence: ES)
  Receive Date: 20240712
  Receipt Date: 20240712
  Transmission Date: 20241017
  Serious: Yes (Death)
  Sender: MYLAN
  Company Number: None

PATIENT
  Age: 59 Year
  Sex: Male

DRUGS (2)
  1. METFORMIN [Interacting]
     Active Substance: METFORMIN HYDROCHLORIDE
     Indication: Type 2 diabetes mellitus
     Dosage: 850 MILLIGRAM, QD
     Route: 048
     Dates: start: 20230905, end: 20230908
  2. OMNIPAQUE [Interacting]
     Active Substance: IOHEXOL
     Indication: Scan with contrast
     Dosage: 80 MILLILITER, TOTAL, STRENGTH: 350 MG IODINE /ML
     Route: 042
     Dates: start: 20230904, end: 20230904

REACTIONS (2)
  - Lactic acidosis [Fatal]
  - Drug interaction [Unknown]

NARRATIVE: CASE EVENT DATE: 20230909
